FAERS Safety Report 8052662-8 (Version None)
Quarter: 2012Q1

REPORT INFORMATION
  Report Type: 
  Country: None (occurrence: None)
  Receive Date: 20120118
  Receipt Date: 20120118
  Transmission Date: 20120608
  Serious: No
  Sender: FDA-Public Use
  Company Number: None

PATIENT
  Age: 21 Year
  Sex: Female
  Weight: 81.646 kg

DRUGS (1)
  1. IMPLANON [Suspect]
     Indication: CONTRACEPTION
     Dates: start: 20101230, end: 20120117

REACTIONS (4)
  - DIZZINESS [None]
  - NAUSEA [None]
  - MENORRHAGIA [None]
  - MENSTRUATION IRREGULAR [None]
